FAERS Safety Report 8874419 (Version 2)
Quarter: 2012Q4

REPORT INFORMATION
  Report Type: 
  Country: JP (occurrence: JP)
  Receive Date: 20121030
  Receipt Date: 20121102
  Transmission Date: 20130627
  Serious: Yes (Hospitalization)
  Sender: FDA-Public Use
  Company Number: JP-TEVA-365062ISR

PATIENT
  Age: 59 Year
  Sex: Female

DRUGS (1)
  1. PREDNISOLONE [Suspect]
     Indication: ANAEMIA HAEMOLYTIC AUTOIMMUNE
     Dosage: 20 Milligram Daily;
     Route: 065

REACTIONS (3)
  - Nocardiosis [Recovered/Resolved]
  - Muscle abscess [Recovered/Resolved]
  - Brain abscess [Recovered/Resolved]
